FAERS Safety Report 8471521-X (Version None)
Quarter: 2012Q2

REPORT INFORMATION
  Report Type: 
  Country: None (occurrence: None)
  Receive Date: 20120627
  Receipt Date: 20120621
  Transmission Date: 20120825
  Serious: Yes (Hospitalization)
  Sender: FDA-Public Use
  Company Number: BE-ROCHE-1043891

PATIENT
  Sex: Male
  Weight: 80 kg

DRUGS (7)
  1. KEPPRA [Concomitant]
     Indication: EPILEPSY
     Route: 048
     Dates: start: 20120615
  2. PERINDOPRIL ERBUMINE [Concomitant]
     Indication: HYPERTENSION
     Route: 048
     Dates: start: 20110919
  3. AVASTIN [Suspect]
     Indication: GLIOBLASTOMA
     Route: 042
     Dates: start: 20110923
  4. NEXIUM [Concomitant]
     Route: 048
     Dates: start: 20110523
  5. MEDROL [Concomitant]
     Indication: GLIOBLASTOMA
     Route: 048
     Dates: start: 20110301
  6. BISOPROLOL FUMARATE [Concomitant]
     Indication: HYPERTENSION
     Route: 048
     Dates: start: 20110501
  7. AVASTIN [Suspect]
     Route: 042
     Dates: start: 20120203, end: 20120203

REACTIONS (3)
  - LUNG INFECTION [None]
  - PYREXIA [None]
  - GENERAL PHYSICAL HEALTH DETERIORATION [None]
